FAERS Safety Report 24155243 (Version 1)
Quarter: 2024Q3

REPORT INFORMATION
  Report Type: Spontaneous
  Country: FR (occurrence: FR)
  Receive Date: 20240731
  Receipt Date: 20240731
  Transmission Date: 20241016
  Serious: Yes (Hospitalization)
  Sender: SANDOZ
  Company Number: None

PATIENT
  Age: 42 Year
  Sex: Male
  Weight: 110 kg

DRUGS (6)
  1. CODEINE [Suspect]
     Active Substance: CODEINE
     Indication: Intervertebral disc protrusion
     Dosage: 6 DF, QD
     Route: 048
     Dates: start: 20240630
  2. KETOPROFEN [Suspect]
     Active Substance: KETOPROFEN
     Indication: Intervertebral disc protrusion
     Dosage: 2 DF, QD
     Route: 048
     Dates: start: 20240630
  3. OMEPRAZOLE [Suspect]
     Active Substance: OMEPRAZOLE
     Indication: Intervertebral disc protrusion
     Dosage: 1 DF, QD
     Route: 048
     Dates: start: 20240630
  4. ACETAMINOPHEN [Suspect]
     Active Substance: ACETAMINOPHEN
     Indication: Intervertebral disc protrusion
     Dosage: 6 DF, QD
     Route: 048
     Dates: start: 20240630
  5. PRISTINAMYCIN [Suspect]
     Active Substance: PRISTINAMYCIN
     Indication: Subcutaneous abscess
     Dosage: 6 DF, QD
     Route: 048
     Dates: start: 20240630
  6. DIAZEPAM [Concomitant]
     Active Substance: DIAZEPAM
     Indication: Product used for unknown indication
     Dosage: 1 COMPRIM? PAR JOUR
     Route: 048
     Dates: start: 20240630

REACTIONS (2)
  - Pancreatitis acute [Not Recovered/Not Resolved]
  - Blood bilirubin increased [Not Recovered/Not Resolved]

NARRATIVE: CASE EVENT DATE: 20240702
